FAERS Safety Report 16729177 (Version 1)
Quarter: 2019Q3

REPORT INFORMATION
  Report Type: Spontaneous
  Country: US (occurrence: US)
  Receive Date: 20190822
  Receipt Date: 20190822
  Transmission Date: 20191005
  Serious: Yes (Hospitalization, Other)
  Sender: FDA-Public Use
  Company Number: US-PFIZER INC-2019357197

PATIENT
  Age: 78 Year
  Sex: Female
  Weight: 55.79 kg

DRUGS (1)
  1. LYRICA [Suspect]
     Active Substance: PREGABALIN
     Indication: NEUROPATHY PERIPHERAL
     Dosage: UNK
     Dates: start: 2019, end: 2019

REACTIONS (8)
  - Feeling hot [Recovered/Resolved with Sequelae]
  - Tremor [Not Recovered/Not Resolved]
  - Respiratory arrest [Recovered/Resolved]
  - Asthenia [Not Recovered/Not Resolved]
  - Staring [Recovered/Resolved]
  - Loss of consciousness [Recovered/Resolved]
  - Vomiting [Recovered/Resolved]
  - Gait disturbance [Unknown]

NARRATIVE: CASE EVENT DATE: 2019
